FAERS Safety Report 13057500 (Version 1)
Quarter: 2016Q4

REPORT INFORMATION
  Report Type: Spontaneous
  Country: US (occurrence: US)
  Receive Date: 20161222
  Receipt Date: 20161222
  Transmission Date: 20170207
  Serious: Yes (Hospitalization)
  Sender: FDA-Public Use
  Company Number: None

PATIENT
  Age: 66 Year
  Sex: Male
  Weight: 112 kg

DRUGS (1)
  1. WARFARIN [Suspect]
     Active Substance: WARFARIN
     Indication: DEEP VEIN THROMBOSIS
     Dates: start: 20161201

REACTIONS (4)
  - Anaemia [None]
  - Treatment noncompliance [None]
  - Cardiac failure congestive [None]
  - International normalised ratio increased [None]

NARRATIVE: CASE EVENT DATE: 20161219
